FAERS Safety Report 13346253 (Version 2)
Quarter: 2017Q3

REPORT INFORMATION
  Report Type: Spontaneous
  Country: US (occurrence: US)
  Receive Date: 20170317
  Receipt Date: 20170705
  Transmission Date: 20171127
  Serious: Yes (Hospitalization, Other)
  Sender: FDA-Public Use
  Company Number: US-GLAXOSMITHKLINE-US2017GSK037012

PATIENT
  Sex: Female
  Weight: 93.42 kg

DRUGS (22)
  1. VITAMIN D3 [Concomitant]
     Active Substance: CHOLECALCIFEROL
  2. BENLYSTA [Suspect]
     Active Substance: BELIMUMAB
     Indication: SYSTEMIC LUPUS ERYTHEMATOSUS
     Dosage: 920 MG, CYC
     Route: 042
     Dates: start: 20170227
  3. BENLYSTA [Suspect]
     Active Substance: BELIMUMAB
     Indication: CONNECTIVE TISSUE DISORDER
     Dosage: 920 MG, U
     Route: 042
     Dates: start: 20170227
  4. BENLYSTA [Suspect]
     Active Substance: BELIMUMAB
     Dosage: 920 MG, U
     Route: 042
     Dates: start: 20170405
  5. LEVOTHYROXINE. [Concomitant]
     Active Substance: LEVOTHYROXINE
  6. LISINOPRIL-HYDROCHLOROTHIAZIDE [Concomitant]
     Active Substance: HYDROCHLOROTHIAZIDE\LISINOPRIL
  7. NEURONTIN [Concomitant]
     Active Substance: GABAPENTIN
  8. HALOBETASOL [Concomitant]
     Active Substance: HALOBETASOL PROPIONATE
  9. CURCUMIN [Concomitant]
     Active Substance: CURCUMIN
  10. TYLENOL ARTHRITIS PAIN [Concomitant]
     Active Substance: ACETAMINOPHEN
  11. PREDNISONE. [Suspect]
     Active Substance: PREDNISONE
     Indication: PRODUCT USED FOR UNKNOWN INDICATION
     Dosage: 20 MG, QD
  12. PLAQUENIL [Concomitant]
     Active Substance: HYDROXYCHLOROQUINE SULFATE
  13. ESCITALOPRAM [Concomitant]
     Active Substance: ESCITALOPRAM OXALATE
  14. COQ10 [Concomitant]
     Active Substance: UBIDECARENONE
  15. PEPTO-BISMOL [Concomitant]
     Active Substance: BISMUTH SUBSALICYLATE
  16. BENLYSTA [Suspect]
     Active Substance: BELIMUMAB
     Dosage: 920 MG, U
     Route: 042
     Dates: start: 20170405
  17. TRAMADOL. [Concomitant]
     Active Substance: TRAMADOL
  18. ZANTAC [Concomitant]
     Active Substance: RANITIDINE HYDROCHLORIDE
  19. OMEGA 3 [Concomitant]
     Active Substance: OMEGA-3 FATTY ACIDS
  20. DHEA [Concomitant]
     Active Substance: PRASTERONE
  21. TUMS [Concomitant]
     Active Substance: CALCIUM CARBONATE
  22. BENLYSTA [Suspect]
     Active Substance: BELIMUMAB
     Dosage: 920 MG, U
     Route: 042
     Dates: start: 20170405

REACTIONS (48)
  - Ear pain [Unknown]
  - Skin haemorrhage [Unknown]
  - Skin warm [Unknown]
  - Body temperature increased [Unknown]
  - Rhonchi [Unknown]
  - Nausea [Recovered/Resolved]
  - Systemic lupus erythematosus [Unknown]
  - Upper-airway cough syndrome [Unknown]
  - Diarrhoea [Unknown]
  - Oral candidiasis [Unknown]
  - Breast pain [Unknown]
  - Emotional distress [Unknown]
  - Muscle atrophy [Unknown]
  - Stomatitis [Unknown]
  - Muscular weakness [Not Recovered/Not Resolved]
  - Pruritus [Unknown]
  - Excoriation [Unknown]
  - Malaise [Unknown]
  - Muscle contracture [Unknown]
  - Pneumonia [Unknown]
  - Dysphagia [Not Recovered/Not Resolved]
  - Oesophageal candidiasis [Unknown]
  - Gastrooesophageal reflux disease [Unknown]
  - Tongue coated [Unknown]
  - Effusion [Unknown]
  - Myalgia [Unknown]
  - Oropharyngeal pain [Unknown]
  - Balance disorder [Not Recovered/Not Resolved]
  - Vitreous floaters [Not Recovered/Not Resolved]
  - Adverse event [Unknown]
  - Neurodermatitis [Unknown]
  - Gingival pain [Unknown]
  - Asthenia [Not Recovered/Not Resolved]
  - Weight decreased [Not Recovered/Not Resolved]
  - Musculoskeletal chest pain [Unknown]
  - Cellulitis [Unknown]
  - Throat irritation [Unknown]
  - Fatigue [Recovered/Resolved]
  - Anxiety [Unknown]
  - Pharyngeal exudate [Unknown]
  - Oesophageal stenosis [Unknown]
  - Hypophagia [Not Recovered/Not Resolved]
  - Arthralgia [Unknown]
  - Skin oedema [Unknown]
  - Muscle oedema [Unknown]
  - Gastrointestinal pain [Unknown]
  - Dry mouth [Unknown]
  - Rash [Unknown]
